FAERS Safety Report 9669998 (Version 2)
Quarter: 2019Q2

REPORT INFORMATION
  Report Type: Spontaneous
  Country: DE (occurrence: DE)
  Receive Date: 20131105
  Receipt Date: 20190626
  Transmission Date: 20190711
  Serious: Yes (Hospitalization, Other)
  Sender: FDA-Public Use
  Company Number: GXKR2013DE003443

PATIENT
  Age: 24 Hour
  Sex: Male
  Weight: 2.86 kg

DRUGS (5)
  1. LEVETIRACETAM. [Suspect]
     Active Substance: LEVETIRACETAM
     Indication: EPILEPSY
     Dosage: MATERNAL DOSE: 2250 [(1000-250-1000)MG/D ], 0.-37+3 GW
     Route: 064
  2. LEVETIRACETAM. [Suspect]
     Active Substance: LEVETIRACETAM
     Dosage: 2250 MG/D(1000-250-1000) MG/DAY
     Route: 064
  3. ROPIVACAIN HCL [Concomitant]
     Active Substance: ROPIVACAINE HYDROCHLORIDE
     Indication: PAIN
     Dosage: MATERNAL DOSE: UKN, AT 37+3 GW
     Route: 064
  4. SUFENTANIL [Concomitant]
     Active Substance: SUFENTANIL
     Indication: PAIN
     Dosage: MATERNAL DOSE: UKN, AT 37+3 GW
     Route: 064
     Dates: start: 20081020, end: 20081020
  5. LAMOTRIGINE. [Suspect]
     Active Substance: LAMOTRIGINE
     Indication: EPILEPSY
     Dosage: MATERNAL DOSE: 400 [(200-0-200) MG/D ], 0.-37+3 GW
     Route: 064

REACTIONS (5)
  - Portal vein thrombosis [Recovered/Resolved]
  - Infantile apnoea [Recovered/Resolved]
  - Patent ductus arteriosus [Recovered/Resolved]
  - Selective eating disorder [Recovered/Resolved]
  - Agitation neonatal [Recovered/Resolved]

NARRATIVE: CASE EVENT DATE: 2008
